FAERS Safety Report 7267349-9 (Version None)
Quarter: 2011Q1

REPORT INFORMATION
  Report Type: 
  Country: None (occurrence: None)
  Receive Date: 20110201
  Receipt Date: 20100423
  Transmission Date: 20110831
  Serious: No
  Sender: FDA-Public Use
  Company Number: A0856476A

PATIENT
  Age: 45 Year
  Sex: Female

DRUGS (8)
  1. CYCLOSPORINE [Concomitant]
  2. ASCORBIC ACID [Concomitant]
  3. NEXIUM [Concomitant]
  4. DIETARY SUPPLEMENT [Concomitant]
     Indication: BONE DENSITOMETRY
  5. ARIXTRA [Suspect]
     Dosage: 7.5MG PER DAY
     Route: 058
     Dates: start: 20100417
  6. FISH OIL [Concomitant]
  7. IMITREX [Concomitant]
  8. VITAMIN D [Concomitant]

REACTIONS (7)
  - NAUSEA [None]
  - DECREASED APPETITE [None]
  - ASTHENIA [None]
  - PYREXIA [None]
  - NIGHT SWEATS [None]
  - FEELING COLD [None]
  - HEADACHE [None]
